FAERS Safety Report 7409424-1 (Version None)
Quarter: 2011Q2

REPORT INFORMATION
  Report Type: 
  Country: None (occurrence: None)
  Receive Date: 20110412
  Receipt Date: 20110228
  Transmission Date: 20111010
  Serious: Yes (Death, Hospitalization, Other)
  Sender: FDA-Public Use
  Company Number: US-BAXTER-2009BH016524

PATIENT
  Age: 42 Year
  Sex: Male

DRUGS (11)
  1. HEPARIN SODIUM INJECTION [Suspect]
     Route: 042
     Dates: start: 20071013
  2. HEPARIN SODIUM INJECTION [Suspect]
     Route: 042
     Dates: start: 20071013
  3. HEPARIN SODIUM INJECTION [Suspect]
     Indication: PROPHYLAXIS
     Route: 042
     Dates: start: 20071013, end: 20071207
  4. HEPARIN SODIUM INJECTION [Suspect]
     Route: 065
  5. HEPARIN SODIUM INJECTION [Suspect]
     Route: 065
  6. HEPARIN SODIUM INJECTION [Suspect]
     Indication: INTRAVENOUS CATHETER MANAGEMENT
     Route: 042
     Dates: start: 20071013, end: 20071207
  7. HEPARIN SODIUM INJECTION [Suspect]
     Route: 042
     Dates: start: 20071013
  8. HYDROXYUREA [Concomitant]
     Indication: PRODUCT USED FOR UNKNOWN INDICATION
     Route: 065
  9. KEPPRA [Concomitant]
     Indication: PRODUCT USED FOR UNKNOWN INDICATION
     Route: 065
  10. HEPARIN SODIUM INJECTION [Suspect]
     Indication: STEM CELL TRANSPLANT
     Route: 042
     Dates: start: 20071013, end: 20071207
  11. HEPARIN SODIUM INJECTION [Suspect]
     Route: 065

REACTIONS (23)
  - GASTROINTESTINAL HAEMORRHAGE [None]
  - VOMITING [None]
  - ASTHENIA [None]
  - HYPOTENSION [None]
  - OEDEMA [None]
  - DEEP VEIN THROMBOSIS [None]
  - MALAISE [None]
  - MULTI-ORGAN FAILURE [None]
  - SEPTIC SHOCK [None]
  - ENCEPHALOPATHY [None]
  - PNEUMONIA [None]
  - HYPOXIA [None]
  - COUGH [None]
  - NEUTROPENIA [None]
  - BURNING SENSATION [None]
  - HAEMORRHAGE [None]
  - CHRONIC MYELOID LEUKAEMIA [None]
  - RENAL FAILURE [None]
  - PULSELESS ELECTRICAL ACTIVITY [None]
  - PYREXIA [None]
  - HAEMOGLOBIN DECREASED [None]
  - HAEMATURIA [None]
  - HEADACHE [None]
